FAERS Safety Report 7737303-9 (Version None)
Quarter: 2011Q3

REPORT INFORMATION
  Report Type: 
  Country: None (occurrence: None)
  Receive Date: 20110908
  Receipt Date: 20110902
  Transmission Date: 20111222
  Serious: Yes (Other)
  Sender: FDA-Public Use
  Company Number: US-ABBOTT-09P-163-0607317-00

PATIENT
  Sex: Female

DRUGS (7)
  1. XANAX [Concomitant]
     Indication: PRODUCT USED FOR UNKNOWN INDICATION
     Dosage: AT BEDTIME
  2. DIOVAN [Concomitant]
     Indication: HYPERTENSION
     Dosage: DAILY
  3. LASIX [Concomitant]
     Indication: OEDEMA PERIPHERAL
  4. HUMIRA [Suspect]
     Indication: CROHN'S DISEASE
     Route: 058
     Dates: start: 20080801, end: 20090601
  5. TRAMADOL HYDROCHLORIDE [Concomitant]
     Indication: PAIN
  6. LISINOPRIL [Concomitant]
     Indication: HYPERTENSION
  7. DILAUDID [Concomitant]
     Indication: PAIN

REACTIONS (3)
  - FISTULA [None]
  - PAIN [None]
  - CROHN'S DISEASE [None]
